FAERS Safety Report 19703236 (Version 1)
Quarter: 2021Q3

REPORT INFORMATION
  Report Type: Report from Study
  Country: US (occurrence: US)
  Receive Date: 20210816
  Receipt Date: 20210816
  Transmission Date: 20211014
  Serious: No
  Sender: FDA-Public Use
  Company Number: US-KYOWAKIRIN-2021BKK013984

PATIENT

DRUGS (1)
  1. ISTRADEFYLLINE [Suspect]
     Active Substance: ISTRADEFYLLINE
     Indication: PARKINSON^S DISEASE
     Dosage: 20 / QD
     Route: 065
     Dates: start: 202001, end: 202104

REACTIONS (3)
  - Malaise [Unknown]
  - Therapy non-responder [Recovered/Resolved]
  - Dizziness [Not Recovered/Not Resolved]
